FAERS Safety Report 10017759 (Version 1)
Quarter: 2014Q1

REPORT INFORMATION
  Report Type: Spontaneous
  Country: US (occurrence: US)
  Receive Date: 20140318
  Receipt Date: 20140318
  Transmission Date: 20141002
  Serious: No
  Sender: FDA-Public Use
  Company Number: US-BRISTOL-MYERS SQUIBB COMPANY-18821876

PATIENT
  Age: 76 Year
  Sex: Male
  Weight: 113.83 kg

DRUGS (3)
  1. ERBITUX [Suspect]
     Indication: COLON CANCER
     Dosage: 250MG /M2
     Dates: start: 20121210
  2. CAMPTOSAR [Concomitant]
     Indication: CHEMOTHERAPY
  3. 5-FLUOROURACIL [Concomitant]
     Indication: CHEMOTHERAPY

REACTIONS (1)
  - Rash [Unknown]
